FAERS Safety Report 21199210 (Version 4)
Quarter: 2023Q2

REPORT INFORMATION
  Report Type: Report from Study
  Country: US (occurrence: US)
  Receive Date: 20220811
  Receipt Date: 20230623
  Transmission Date: 20230722
  Serious: No
  Sender: FDA-Public Use
  Company Number: US-NOVARTISTESTPH-NVSC2022US180995

PATIENT
  Age: 51 Year
  Sex: Female

DRUGS (1)
  1. KESIMPTA [Suspect]
     Active Substance: OFATUMUMAB
     Indication: Multiple sclerosis
     Dosage: 20 MG, QMO
     Route: 058
     Dates: start: 20220626

REACTIONS (12)
  - Stress [Unknown]
  - Insomnia [Recovering/Resolving]
  - Nightmare [Unknown]
  - Breast engorgement [Not Recovered/Not Resolved]
  - Breast pain [Unknown]
  - Skin disorder [Not Recovered/Not Resolved]
  - Acne [Unknown]
  - Rash macular [Unknown]
  - Brain fog [Unknown]
  - Condition aggravated [Not Recovered/Not Resolved]
  - Memory impairment [Unknown]
  - Urinary tract infection [Unknown]

NARRATIVE: CASE EVENT DATE: 20220801
